FAERS Safety Report 6948437-0 (Version None)
Quarter: 2010Q3

REPORT INFORMATION
  Report Type: 
  Country: None (occurrence: None)
  Receive Date: 20100828
  Receipt Date: 20091029
  Transmission Date: 20110219
  Serious: No
  Sender: FDA-Public Use
  Company Number: US-ABBOTT-09P-163-0606410-00

PATIENT
  Sex: Female
  Weight: 80.812 kg

DRUGS (6)
  1. NIASPAN [Suspect]
     Indication: BLOOD CHOLESTEROL INCREASED
     Dates: start: 20090901, end: 20090901
  2. NIASPAN [Suspect]
     Dates: start: 20090901, end: 20091001
  3. NIASPAN [Suspect]
     Dates: start: 20091001
  4. METFORMIN [Concomitant]
     Indication: PRODUCT USED FOR UNKNOWN INDICATION
  5. ESCITALOPRAM OXALATE [Concomitant]
     Indication: PRODUCT USED FOR UNKNOWN INDICATION
  6. SIMVASTATIN [Concomitant]
     Indication: PRODUCT USED FOR UNKNOWN INDICATION

REACTIONS (7)
  - ERYTHEMA [None]
  - FEELING COLD [None]
  - FLUSHING [None]
  - JOINT SWELLING [None]
  - NAUSEA [None]
  - OEDEMA PERIPHERAL [None]
  - SKIN BURNING SENSATION [None]
